FAERS Safety Report 6248523-7 (Version None)
Quarter: 2009Q2

REPORT INFORMATION
  Report Type: 
  Country: None (occurrence: None)
  Receive Date: 20090629
  Receipt Date: 20090624
  Transmission Date: 20091009
  Serious: Yes (Other)
  Sender: FDA-Public Use
  Company Number: US-JNJFOC-20090608904

PATIENT
  Age: 5 Decade
  Sex: Female

DRUGS (1)
  1. LEVAQUIN [Suspect]
     Indication: SINUSITIS
     Dosage: FOR FIVE DAYS
     Route: 048

REACTIONS (2)
  - EPICONDYLITIS [None]
  - TENDONITIS [None]
